FAERS Safety Report 4394545-0 (Version None)
Quarter: 2004Q3

REPORT INFORMATION
  Report Type: 
  Country: None (occurrence: None)
  Receive Date: 20040709
  Receipt Date: 20040709
  Transmission Date: 20050211
  Serious: Yes (Life-Threatening)
  Sender: FDA-Public Use
  Company Number: None

PATIENT
  Age: 43 Year
  Sex: Female

DRUGS (9)
  1. HALDOL [Suspect]
     Dosage: 5 MG ONE INTRAVENOUS
     Route: 042
  2. LABETALOL HCL [Concomitant]
  3. LACTULOSE [Concomitant]
  4. LORAZEPAM [Concomitant]
  5. METOCLOPRAMIDE [Concomitant]
  6. METRONIDAZOLE [Concomitant]
  7. SANDOSTATIN [Concomitant]
  8. PANTOPRAZOLE [Concomitant]
  9. VITAMIN K TAB [Concomitant]

REACTIONS (2)
  - CARDIAC ARREST [None]
  - VENTRICULAR TACHYCARDIA [None]
